FAERS Safety Report 22288768 (Version 1)
Quarter: 2023Q2

REPORT INFORMATION
  Report Type: Other
  Country: RU (occurrence: None)
  Receive Date: 20230505
  Receipt Date: 20230505
  Transmission Date: 20230722
  Serious: Yes (Life-Threatening, Hospitalization)
  Sender: FDA-Public Use
  Company Number: RU-ROCHE-3341913

PATIENT
  Age: 30 Year
  Sex: Male

DRUGS (4)
  1. ATEZOLIZUMAB [Suspect]
     Active Substance: ATEZOLIZUMAB
     Indication: Malignant melanoma
     Route: 065
  2. METHYLPREDNISOLONE [Concomitant]
     Active Substance: METHYLPREDNISOLONE
     Dosage: 2 MG/KG WITH ACCOMPANYING THERAPY
  3. ADEMETIONINE [Concomitant]
     Active Substance: ADEMETIONINE
     Dosage: 800 MG/DAY
  4. ORAL HYDRATION (UNK INGREDIENTS) [Concomitant]
     Dosage: MORE THAN 2 L/DAY

REACTIONS (1)
  - Hepatotoxicity [Recovered/Resolved]

NARRATIVE: CASE EVENT DATE: 20230209
